FAERS Safety Report 5477173-5 (Version None)
Quarter: 2007Q4

REPORT INFORMATION
  Report Type: 
  Country: None (occurrence: None)
  Receive Date: 20071004
  Receipt Date: 20070928
  Transmission Date: 20080405
  Serious: Yes (Other)
  Sender: FDA-Public Use
  Company Number: A0685014A

PATIENT
  Age: 76 Year
  Sex: Female

DRUGS (15)
  1. ADVAIR DISKUS 100/50 [Suspect]
     Indication: ASTHMA
     Route: 055
     Dates: start: 19920101, end: 20070101
  2. ADVAIR DISKUS 100/50 [Suspect]
     Route: 055
     Dates: start: 20070928
  3. FORADIL [Suspect]
     Indication: ASTHMA
     Route: 065
     Dates: start: 20060101, end: 20060101
  4. SINGULAIR [Concomitant]
  5. ZETIA [Concomitant]
  6. METHOTREXATE [Concomitant]
  7. SYNTHROID [Concomitant]
  8. FOLIC ACID [Concomitant]
  9. VITAMIN E [Concomitant]
  10. OSCAL [Concomitant]
  11. CENTRUM SILVER [Concomitant]
  12. ZANTAC [Concomitant]
  13. NEXIUM [Concomitant]
  14. TYLENOL ARTHRITIS [Concomitant]
  15. ZYRTEC [Concomitant]

REACTIONS (3)
  - ASTHMA [None]
  - DYSPHONIA [None]
  - DYSPNOEA [None]
